FAERS Safety Report 5589763-X (Version None)
Quarter: 2007Q4

REPORT INFORMATION
  Report Type: 
  Country: None (occurrence: None)
  Receive Date: 20071212
  Receipt Date: 20070925
  Transmission Date: 20080405
  Serious: Yes (Hospitalization)
  Sender: FDA-Public Use
  Company Number: USA-2007-0029361

PATIENT
  Age: 45 Year
  Sex: Female

DRUGS (3)
  1. OXYCONTIN [Suspect]
     Indication: PAIN
  2. REBIF [Suspect]
     Indication: MULTIPLE SCLEROSIS
     Dosage: 44 MCG, 3/WEEK, SUBCUTANEOUS
     Route: 058
     Dates: start: 20070727
  3. PROVIGIL [Suspect]
     Indication: DRUG USE FOR UNKNOWN INDICATION

REACTIONS (5)
  - ANOREXIA [None]
  - BURNING SENSATION [None]
  - DEPRESSION [None]
  - PAIN IN EXTREMITY [None]
  - WEIGHT DECREASED [None]
